FAERS Safety Report 18643834 (Version 1)
Quarter: 2020Q4

REPORT INFORMATION
  Report Type: Spontaneous
  Country: US (occurrence: US)
  Receive Date: 20201221
  Receipt Date: 20201221
  Transmission Date: 20210114
  Serious: No
  Sender: FDA-Public Use
  Company Number: None

PATIENT
  Age: 79 Year
  Sex: Male
  Weight: 67.59 kg

DRUGS (5)
  1. REVLIMID [Concomitant]
     Active Substance: LENALIDOMIDE
  2. ACYCLOVIR. [Concomitant]
     Active Substance: ACYCLOVIR
  3. ARTIFICAL TEARS [Concomitant]
     Active Substance: GLYCERIN\HYPROMELLOSE 2910 (15 MPA.S)\POLYETHYLENE GLYCOL 400\PROPYLENE GLYCOL
  4. ASPIRIN 81 [Concomitant]
     Active Substance: ASPIRIN
  5. NINLARO [Suspect]
     Active Substance: IXAZOMIB CITRATE
     Indication: MENINGOMYELOCELE
     Dosage: ?          OTHER FREQUENCY:DAY 1, 8 15;?
     Route: 048
     Dates: start: 20200515, end: 20201221

REACTIONS (1)
  - Death [None]

NARRATIVE: CASE EVENT DATE: 20201221
